FAERS Safety Report 18706570 (Version 3)
Quarter: 2021Q1

REPORT INFORMATION
  Report Type: Spontaneous
  Country: US (occurrence: US)
  Receive Date: 20210106
  Receipt Date: 20210308
  Transmission Date: 20210419
  Serious: Yes (Other)
  Sender: FDA-Public Use
  Company Number: US-PFIZER INC-2021000516

PATIENT
  Age: 66 Year
  Sex: Female

DRUGS (1)
  1. RELPAX [Suspect]
     Active Substance: ELETRIPTAN HYDROBROMIDE
     Indication: MIGRAINE
     Dosage: UNK

REACTIONS (6)
  - Migraine [Unknown]
  - Illness [Unknown]
  - Visual impairment [Unknown]
  - Enuresis [Unknown]
  - Suicidal ideation [Unknown]
  - Vomiting [Unknown]
